FAERS Safety Report 5507546-3 (Version None)
Quarter: 2007Q4

REPORT INFORMATION
  Report Type: 
  Country: None (occurrence: None)
  Receive Date: 20071105
  Receipt Date: 20071105
  Transmission Date: 20080405
  Serious: No
  Sender: FDA-Public Use
  Company Number: None

PATIENT
  Age: 39 Year
  Sex: Female
  Weight: 68.0396 kg

DRUGS (9)
  1. CIPROFLOXACIN [Suspect]
     Indication: URINARY TRACT INFECTION
     Dosage: 500 MG  BID  PO
     Route: 048
     Dates: start: 20071031, end: 20071101
  2. ADVAIR DISKUS 100/50 [Concomitant]
  3. ALBUTEROL [Concomitant]
  4. PANCREASE [Concomitant]
  5. MULTI-VITAMIN [Concomitant]
  6. CALCIUM CITRATE [Concomitant]
  7. IRON [Concomitant]
  8. VITAMIN D [Concomitant]
  9. AMITRIP [Concomitant]

REACTIONS (19)
  - ANOREXIA [None]
  - BLEPHAROSPASM [None]
  - BLINDNESS TRANSIENT [None]
  - BURNING SENSATION [None]
  - CONFUSIONAL STATE [None]
  - DISTURBANCE IN ATTENTION [None]
  - DIZZINESS [None]
  - DRY EYE [None]
  - HEADACHE [None]
  - HYPOAESTHESIA [None]
  - INSOMNIA [None]
  - MANIA [None]
  - MUSCLE SPASMS [None]
  - MUSCLE TWITCHING [None]
  - PARAESTHESIA [None]
  - RESTLESSNESS [None]
  - TENDON PAIN [None]
  - TIC [None]
  - TREMOR [None]
